FAERS Safety Report 25671967 (Version 3)
Quarter: 2025Q3

REPORT INFORMATION
  Report Type: Report from Study
  Country: US (occurrence: US)
  Receive Date: 20250812
  Receipt Date: 20250821
  Transmission Date: 20251020
  Serious: Yes (Hospitalization)
  Sender: ABBVIE
  Company Number: US-ABBVIE-6407595

PATIENT
  Age: 56 Year
  Sex: Male

DRUGS (1)
  1. SKYRIZI [Suspect]
     Active Substance: RISANKIZUMAB-RZAA
     Indication: Psoriasis
     Route: 058
     Dates: start: 20250505, end: 20250707

REACTIONS (4)
  - Abdominal hernia [Not Recovered/Not Resolved]
  - Intestinal sepsis [Recovered/Resolved]
  - Sepsis [Recovered/Resolved]
  - Functional gastrointestinal disorder [Recovered/Resolved]

NARRATIVE: CASE EVENT DATE: 20250718
